FAERS Safety Report 22941901 (Version 2)
Quarter: 2023Q4

REPORT INFORMATION
  Report Type: Report from Study
  Country: US (occurrence: US)
  Receive Date: 20230914
  Receipt Date: 20231019
  Transmission Date: 20240110
  Serious: No
  Sender: FDA-Public Use
  Company Number: US-DECIPHERA PHARMACEUTICALS LLC-2023US000800

PATIENT
  Age: 69 Year
  Sex: Male
  Weight: 73.107 kg

DRUGS (3)
  1. QINLOCK [Suspect]
     Active Substance: RIPRETINIB
     Indication: Neoplasm malignant
     Dosage: 100 MILLIGRAM, QD
     Route: 048
     Dates: start: 20221017, end: 202308
  2. QINLOCK [Suspect]
     Active Substance: RIPRETINIB
     Dosage: 100 MILLIGRAM, QD
     Route: 048
     Dates: start: 202308
  3. QINLOCK [Suspect]
     Active Substance: RIPRETINIB
     Dosage: 100 MILLIGRAM, QD
     Route: 048

REACTIONS (15)
  - COVID-19 [Recovered/Resolved]
  - Dysphonia [Unknown]
  - Sneezing [Unknown]
  - Seasonal allergy [Unknown]
  - Insomnia [Unknown]
  - Decreased appetite [Recovering/Resolving]
  - Abdominal pain [Recovered/Resolved]
  - Lethargy [Unknown]
  - Pain [Recovered/Resolved]
  - Musculoskeletal stiffness [Unknown]
  - Diarrhoea [Recovering/Resolving]
  - Weight decreased [Recovering/Resolving]
  - Fatigue [Unknown]
  - Constipation [Unknown]
  - Muscle spasms [Unknown]

NARRATIVE: CASE EVENT DATE: 20230801
